FAERS Safety Report 9691710 (Version 1)
Quarter: 2013Q4

REPORT INFORMATION
  Report Type: Spontaneous
  Country: LB (occurrence: LB)
  Receive Date: 20131115
  Receipt Date: 20131115
  Transmission Date: 20140711
  Serious: Yes (Hospitalization, Other)
  Sender: FDA-Public Use
  Company Number: LB-ABBVIE-13P-093-1169208-00

PATIENT
  Age: 21 Year
  Sex: Male
  Weight: 70 kg

DRUGS (2)
  1. HUMIRA [Suspect]
     Indication: CROHN^S DISEASE
     Dosage: LOADING DOSE
     Route: 058
     Dates: start: 20130613
  2. HUMIRA [Suspect]
     Route: 058
     Dates: end: 20131003

REACTIONS (2)
  - Colectomy [Unknown]
  - Infection [Unknown]
